FAERS Safety Report 24995376 (Version 1)
Quarter: 2025Q1

REPORT INFORMATION
  Report Type: Spontaneous
  Country: US (occurrence: US)
  Receive Date: 20250221
  Receipt Date: 20250221
  Transmission Date: 20250408
  Serious: No
  Sender: TOLMAR
  Company Number: US-TOLMAR, INC.-25US056420

PATIENT
  Age: 67 Year
  Sex: Male

DRUGS (2)
  1. ELIGARD [Suspect]
     Active Substance: LEUPROLIDE ACETATE
     Indication: Prostate cancer
  2. GOSERELIN [Concomitant]
     Active Substance: GOSERELIN
     Indication: Prostate cancer
     Dosage: 10.8 MILLIGRAM, Q 3 MONTH

REACTIONS (1)
  - Intercepted product dispensing error [Unknown]

NARRATIVE: CASE EVENT DATE: 20250129
